FAERS Safety Report 10555195 (Version 1)
Quarter: 2014Q4

REPORT INFORMATION
  Report Type: Spontaneous
  Country: US (occurrence: US)
  Receive Date: 20141030
  Receipt Date: 20141030
  Transmission Date: 20150529
  Serious: Yes (Death)
  Sender: FDA-Public Use
  Company Number: US-BAYER-2014-156831

PATIENT
  Age: 95 Year
  Sex: Female
  Weight: 59 kg

DRUGS (1)
  1. BAYER GENUINE ASPIRIN [Suspect]
     Active Substance: ASPIRIN
     Indication: SCIATICA
     Dosage: 2-6, PRN
     Route: 048
     Dates: end: 1967

REACTIONS (4)
  - Incorrect drug administration duration [Unknown]
  - Therapeutic response unexpected [Unknown]
  - Death [Fatal]
  - Intentional product misuse [Unknown]

NARRATIVE: CASE EVENT DATE: 1967
